FAERS Safety Report 8294507-7 (Version None)
Quarter: 2012Q2

REPORT INFORMATION
  Report Type: 
  Country: None (occurrence: None)
  Receive Date: 20120418
  Receipt Date: 20120410
  Transmission Date: 20120825
  Serious: Yes (Hospitalization)
  Sender: FDA-Public Use
  Company Number: NL-VERTEX PHARMACEUTICALS INC.-000000000000000500

PATIENT
  Sex: Male

DRUGS (4)
  1. CODEINE PHOSPHATE AND ACETAMINOPHEN [Concomitant]
  2. INCIVO (TELAPREVIR) [Suspect]
     Indication: HEPATITIS C
     Dosage: DOSAGE FORM: TABLET
     Route: 048
     Dates: start: 20120229
  3. COPEGUS [Concomitant]
     Indication: HEPATITIS C
     Dates: start: 20120229
  4. PEGINTERFERON ALFA-2A [Concomitant]
     Indication: HEPATITIS C
     Route: 058
     Dates: start: 20120229

REACTIONS (2)
  - PYREXIA [None]
  - MUSCLE SPASMS [None]
